FAERS Safety Report 16989786 (Version 1)
Quarter: 2019Q4

REPORT INFORMATION
  Report Type: Spontaneous
  Country: US (occurrence: US)
  Receive Date: 20190920
  Receipt Date: 20190920
  Transmission Date: 20200122
  Serious: No
  Sender: FDA-Public Use
  Company Number: None

PATIENT
  Age: 57 Year
  Sex: Female

DRUGS (1)
  1. OLUMIANT [Suspect]
     Active Substance: BARICITINIB
     Route: 048
     Dates: start: 20190718

REACTIONS (4)
  - Skin exfoliation [None]
  - Visual impairment [None]
  - Retinal disorder [None]
  - Scab [None]

NARRATIVE: CASE EVENT DATE: 20190718
